FAERS Safety Report 7962569-X (Version None)
Quarter: 2011Q4

REPORT INFORMATION
  Report Type: 
  Country: None (occurrence: None)
  Receive Date: 20111207
  Receipt Date: 20111201
  Transmission Date: 20120403
  Serious: Yes (Hospitalization)
  Sender: FDA-Public Use
  Company Number: FR-ABBOTT-10P-056-0686491-00

PATIENT
  Sex: Male

DRUGS (18)
  1. RIFABUTIN [Concomitant]
     Indication: MYCOBACTERIAL INFECTION
     Dates: start: 20101028
  2. TRANXENE [Concomitant]
     Indication: PRODUCT USED FOR UNKNOWN INDICATION
  3. METHADONE HCL [Concomitant]
     Indication: SUBSTANCE ABUSE
  4. SYMBICORT [Concomitant]
     Indication: PRODUCT USED FOR UNKNOWN INDICATION
  5. DEXAMBUTOL [Concomitant]
     Indication: MYCOBACTERIAL INFECTION
     Dates: start: 20101028
  6. MOXIFLOXACIN HCL [Suspect]
     Indication: MYCOBACTERIAL INFECTION
  7. SPIRIVA [Concomitant]
     Indication: PRODUCT USED FOR UNKNOWN INDICATION
  8. INTERFERON [Concomitant]
     Indication: HEPATITIS C
  9. RAMIPRIL [Concomitant]
     Indication: PRODUCT USED FOR UNKNOWN INDICATION
  10. RIMIFON [Concomitant]
     Indication: PRODUCT USED FOR UNKNOWN INDICATION
     Dates: start: 20101031
  11. MOXIFLOXACIN HCL [Suspect]
     Indication: RESPIRATORY TRACT INFECTION
     Dosage: DAILY DOSE 400MG
     Route: 048
     Dates: start: 20100908, end: 20101026
  12. ESOMEPRAZOLE [Concomitant]
     Indication: PRODUCT USED FOR UNKNOWN INDICATION
  13. TERBUTALINE [Concomitant]
     Indication: PRODUCT USED FOR UNKNOWN INDICATION
  14. HYDROCHLOROTHIAZIDE [Concomitant]
     Indication: PRODUCT USED FOR UNKNOWN INDICATION
  15. CLARITHROMYCIN [Suspect]
     Indication: MYCOBACTERIAL INFECTION
  16. CLARITHROMYCIN [Suspect]
     Indication: RESPIRATORY TRACT INFECTION
     Dosage: DAILY DOSE 1GM
     Route: 048
     Dates: start: 20100908, end: 20101026
  17. RIFABUTIN [Concomitant]
     Indication: RESPIRATORY TRACT INFECTION
     Dosage: DAILY DOSE 300MG
     Dates: start: 20100908, end: 20101027
  18. DEXAMBUTOL [Concomitant]
     Indication: RESPIRATORY TRACT INFECTION
     Dosage: DAILY DOSE 1GM
     Dates: start: 20100908, end: 20101027

REACTIONS (1)
  - RHABDOMYOLYSIS [None]
